FAERS Safety Report 5845624-X (Version None)
Quarter: 2008Q3

REPORT INFORMATION
  Report Type: 
  Country: None (occurrence: None)
  Receive Date: 20080814
  Receipt Date: 20080804
  Transmission Date: 20090109
  Serious: Yes (Death)
  Sender: FDA-Public Use
  Company Number: GB-BAUSCH-2008BL003248

PATIENT
  Age: 2 Year
  Sex: Male

DRUGS (4)
  1. DEXAMETHASONE TAB [Suspect]
     Indication: ACUTE LYMPHOCYTIC LEUKAEMIA
     Route: 048
  2. THIOGUANINE [Suspect]
     Indication: ACUTE LYMPHOCYTIC LEUKAEMIA
  3. METHOTREXATE [Concomitant]
     Route: 048
  4. VINCRISTINE [Concomitant]
     Route: 042

REACTIONS (2)
  - ADENOVIRAL HEPATITIS [None]
  - HEPATIC ENCEPHALOPATHY [None]
